FAERS Safety Report 7000948-8 (Version None)
Quarter: 2010Q3

REPORT INFORMATION
  Report Type: 
  Country: None (occurrence: None)
  Receive Date: 20100920
  Receipt Date: 20100910
  Transmission Date: 20110219
  Serious: Yes (Death, Hospitalization)
  Sender: FDA-Public Use
  Company Number: US-AMGEN-KDC437360

PATIENT
  Age: 66 Year
  Sex: Female

DRUGS (6)
  1. PEGFILGRASTIM [Suspect]
     Indication: BREAST CANCER
     Route: 042
     Dates: start: 20100204, end: 20100326
  2. DOXORUBICIN HCL [Suspect]
     Route: 042
     Dates: start: 20100204, end: 20100325
  3. CYCLOPHOSPHAMIDE [Suspect]
     Route: 042
     Dates: start: 20100204, end: 20100325
  4. PACLITAXEL [Suspect]
     Route: 042
     Dates: end: 20100624
  5. BEVACIZUMAB [Suspect]
     Indication: BREAST CANCER
     Route: 042
     Dates: start: 20100204, end: 20100617
  6. DITROPAN [Concomitant]

REACTIONS (1)
  - CYSTITIS [None]
